FAERS Safety Report 6293246-1 (Version None)
Quarter: 2009Q3

REPORT INFORMATION
  Report Type: 
  Country: None (occurrence: None)
  Receive Date: 20090731
  Receipt Date: 20090721
  Transmission Date: 20100115
  Serious: Yes (Other)
  Sender: FDA-Public Use
  Company Number: SE-ABBOTT-08P-150-0483843-00

PATIENT
  Sex: Male
  Weight: 130 kg

DRUGS (4)
  1. HUMIRA [Suspect]
     Indication: CROHN'S DISEASE
     Route: 058
     Dates: start: 20080115, end: 20081014
  2. HUMIRA [Suspect]
     Route: 058
     Dates: start: 20081104, end: 20081104
  3. HUMIRA [Suspect]
     Route: 058
     Dates: start: 20081218
  4. ZOLMITRIPTAN [Concomitant]
     Indication: MIGRAINE
     Dates: start: 20030323

REACTIONS (1)
  - HIDRADENITIS [None]
